FAERS Safety Report 7648287-6 (Version None)
Quarter: 2011Q3

REPORT INFORMATION
  Report Type: 
  Country: None (occurrence: None)
  Receive Date: 20110801
  Receipt Date: 20110718
  Transmission Date: 20111222
  Serious: Yes (Other)
  Sender: FDA-Public Use
  Company Number: US-ENDO PHARMACEUTICALS INC.-OPER20110171

PATIENT
  Sex: Female

DRUGS (2)
  1. OPANA ER [Suspect]
     Route: 048
  2. OPANA ER [Suspect]
     Indication: PAIN
     Route: 048

REACTIONS (6)
  - ANXIETY [None]
  - MALAISE [None]
  - DRUG DEPENDENCE [None]
  - FEELING ABNORMAL [None]
  - NAUSEA [None]
  - DIZZINESS [None]
